FAERS Safety Report 9805282 (Version 1)
Quarter: 2014Q1

REPORT INFORMATION
  Report Type: Spontaneous
  Country: US (occurrence: None)
  Receive Date: 20140107
  Receipt Date: 20140107
  Transmission Date: 20141002
  Serious: Yes (Other)
  Sender: FDA-Public Use
  Company Number: None

PATIENT
  Age: 71 Year
  Sex: Male
  Weight: 109.1 kg

DRUGS (1)
  1. PACLITAXEL [Suspect]
     Route: 042
     Dates: start: 20130328, end: 20130328

REACTIONS (1)
  - Respiratory disorder [None]
